FAERS Safety Report 4979820-0 (Version None)
Quarter: 2006Q2

REPORT INFORMATION
  Report Type: 
  Country: None (occurrence: None)
  Receive Date: 20060421
  Receipt Date: 20051026
  Transmission Date: 20061013
  Serious: Yes (Hospitalization)
  Sender: FDA-Public Use
  Company Number: US-MERCK-0510USA09179

PATIENT
  Age: 77 Year
  Sex: Male
  Weight: 79 kg

DRUGS (4)
  1. VIOXX [Suspect]
     Indication: ARTHRALGIA
     Route: 048
     Dates: start: 20020101, end: 20040930
  2. VIOXX [Suspect]
     Route: 048
     Dates: start: 20040401
  3. PRILOSEC [Concomitant]
     Route: 065
  4. VITAMINS (UNSPECIFIED) [Concomitant]
     Route: 065

REACTIONS (6)
  - AORTIC VALVE INCOMPETENCE [None]
  - HYPERLIPIDAEMIA [None]
  - MYOCARDIAL ISCHAEMIA [None]
  - NECK PAIN [None]
  - PARAESTHESIA [None]
  - SLEEP DISORDER [None]
